FAERS Safety Report 14349889 (Version 5)
Quarter: 2020Q1

REPORT INFORMATION
  Report Type: Spontaneous
  Country: JP (occurrence: JP)
  Receive Date: 20180104
  Receipt Date: 20200303
  Transmission Date: 20200409
  Serious: Yes (Death)
  Sender: FDA-Public Use
  Company Number: JP-ELI_LILLY_AND_COMPANY-JP201801001273

PATIENT
  Age: 76 Year
  Sex: Female
  Weight: 40 kg

DRUGS (4)
  1. PACLITAXEL. [Suspect]
     Active Substance: PACLITAXEL
     Indication: GASTRIC CANCER
     Dosage: 75 MG, CYCLICAL
     Route: 042
     Dates: start: 20170622, end: 20170706
  2. PACLITAXEL. [Suspect]
     Active Substance: PACLITAXEL
     Dosage: 75 MG, CYCLICAL
     Route: 041
     Dates: start: 20170814, end: 20170928
  3. CYRAMZA [Suspect]
     Active Substance: RAMUCIRUMAB
     Indication: GASTRIC CANCER
     Dosage: 8 MG/KG, OTHER
     Route: 042
     Dates: start: 20170622, end: 20170706
  4. PACLITAXEL. [Suspect]
     Active Substance: PACLITAXEL
     Dosage: 75 MG, CYCLICAL
     Dates: start: 20170720, end: 20170803

REACTIONS (1)
  - Aortic dissection [Fatal]

NARRATIVE: CASE EVENT DATE: 201710
